FAERS Safety Report 6273778-2 (Version None)
Quarter: 2009Q3

REPORT INFORMATION
  Report Type: 
  Country: None (occurrence: None)
  Receive Date: 20090720
  Receipt Date: 20090708
  Transmission Date: 20100115
  Serious: Yes (Other)
  Sender: FDA-Public Use
  Company Number: B0568164A

PATIENT
  Sex: Female

DRUGS (8)
  1. VALTREX [Suspect]
     Indication: ORAL HERPES
     Dosage: 500MG TWICE PER DAY
     Route: 048
     Dates: start: 20061031, end: 20061105
  2. PARIET [Suspect]
     Indication: GASTRIC ULCER
     Dosage: 10MG PER DAY
     Route: 048
     Dates: start: 20060921, end: 20061017
  3. APLACE [Suspect]
     Indication: GASTRIC ULCER
     Dosage: 100MG THREE TIMES PER DAY
     Route: 048
     Dates: start: 20060921, end: 20061017
  4. UNKNOWN DRUG [Concomitant]
     Indication: DRUG USE FOR UNKNOWN INDICATION
     Route: 065
  5. MAGTECT [Concomitant]
     Indication: GASTRIC ULCER
     Dosage: 10MG PER DAY
     Route: 048
     Dates: start: 20060922, end: 20060927
  6. UNKNOWN [Concomitant]
     Dosage: 12MG PER DAY
     Route: 048
     Dates: start: 20061028, end: 20061107
  7. GLYCYRON [Concomitant]
     Indication: HEPATIC FUNCTION ABNORMAL
     Route: 048
     Dates: start: 20061102, end: 20061107
  8. DEXALTIN [Concomitant]
     Indication: STOMATITIS
     Route: 061
     Dates: start: 20061102, end: 20061107

REACTIONS (4)
  - ERYTHEMA [None]
  - ERYTHEMA MULTIFORME [None]
  - FACE OEDEMA [None]
  - LIVER DISORDER [None]
